FAERS Safety Report 7034841-1 (Version None)
Quarter: 2010Q4

REPORT INFORMATION
  Report Type: 
  Country: None (occurrence: None)
  Receive Date: 20101008
  Receipt Date: 20100901
  Transmission Date: 20110411
  Serious: Yes (Other)
  Sender: FDA-Public Use
  Company Number: CH-US-EMD SERONO, INC.-7016479

PATIENT
  Sex: Male

DRUGS (3)
  1. REBIF [Suspect]
     Indication: MULTIPLE SCLEROSIS
     Dosage: MULTIDOSE
     Route: 058
     Dates: start: 20100722, end: 20100820
  2. REBIF [Suspect]
     Route: 058
     Dates: start: 20100820, end: 20100901
  3. REBIF [Suspect]
     Route: 058
     Dates: start: 20100901

REACTIONS (1)
  - HAEMOLYTIC ANAEMIA [None]
